FAERS Safety Report 4972354-9 (Version None)
Quarter: 2006Q1

REPORT INFORMATION
  Report Type: 
  Country: None (occurrence: None)
  Receive Date: 20060215
  Receipt Date: 20051118
  Transmission Date: 20060701
  Serious: No
  Sender: FDA-Public Use
  Company Number: US200511002118

PATIENT
  Age: 56 Year
  Sex: Male

DRUGS (3)
  1. CIALIS [Suspect]
     Indication: ERECTILE DYSFUNCTION
     Dosage: 20 MG,
     Dates: start: 20030101
  2. FLOMAX [Concomitant]
  3. ZELNORM/USA/(TEGASEROD) [Concomitant]

REACTIONS (3)
  - HEADACHE [None]
  - MYALGIA [None]
  - SINUS CONGESTION [None]
